FAERS Safety Report 9012149 (Version 1)
Quarter: 2012Q4

REPORT INFORMATION
  Report Type: Spontaneous
  Country: US (occurrence: None)
  Receive Date: 20121227
  Receipt Date: 20121227
  Transmission Date: 20130627
  Serious: Yes (Other)
  Sender: FDA-Public Use
  Company Number: TPA2012A10412

PATIENT
  Sex: Male

DRUGS (2)
  1. ACTOS (PIOGLITAZONE HYDROCHLORIDE) [Suspect]
     Indication: TYPE II DIABETES
  2. ACTOPLUS [Suspect]
     Indication: TYPE II DIABETES MELLITUS

REACTIONS (2)
  - Prostate cancer [None]
  - Weight fluctuation [None]
